FAERS Safety Report 11278929 (Version 1)
Quarter: 2015Q3

REPORT INFORMATION
  Report Type: Spontaneous
  Country: US (occurrence: None)
  Receive Date: 20150716
  Receipt Date: 20150716
  Transmission Date: 20151125
  Serious: Yes (Hospitalization)
  Sender: FDA-Public Use
  Company Number: None

PATIENT
  Age: 59 Year
  Sex: Male
  Weight: 59.01 kg

DRUGS (21)
  1. LEUCOVORIN. [Suspect]
     Active Substance: LEUCOVORIN
     Route: 042
  2. LORAZEPAM. [Concomitant]
     Active Substance: LORAZEPAM
  3. PANTOPRAZOLE [Concomitant]
     Active Substance: PANTOPRAZOLE SODIUM
  4. FLUOROURACIL? [Suspect]
     Active Substance: FLUOROURACIL
     Route: 042
  5. PILOCARPINE. [Concomitant]
     Active Substance: PILOCARPINE
  6. DEXAMETHASONE. [Concomitant]
     Active Substance: DEXAMETHASONE
  7. METOCLOPRAMIDE. [Concomitant]
     Active Substance: METOCLOPRAMIDE
  8. ABRAXANE [Suspect]
     Active Substance: PACLITAXEL
     Indication: PANCREATIC CARCINOMA
     Route: 042
     Dates: start: 20150710, end: 20150712
  9. THIAMINE. [Concomitant]
     Active Substance: THIAMINE
  10. ASPIRIN. [Concomitant]
     Active Substance: ASPIRIN
  11. MULTIVITAMIN [Concomitant]
     Active Substance: VITAMINS
  12. MIRALAX [Concomitant]
     Active Substance: POLYETHYLENE GLYCOL 3350
  13. PERICOLACE [Concomitant]
  14. BENTYL [Concomitant]
     Active Substance: DICYCLOMINE HYDROCHLORIDE
  15. FOLVITE [Concomitant]
     Active Substance: FOLIC ACID
  16. ACETAMINOPEHN W/ HYDROCODONE [Concomitant]
     Active Substance: ACETAMINOPHEN\HYDROCODONE
  17. OXYCODONE [Concomitant]
     Active Substance: OXYCODONE
  18. OXALIPLATIN? [Suspect]
     Active Substance: OXALIPLATIN
     Route: 042
  19. REMERON [Concomitant]
     Active Substance: MIRTAZAPINE
  20. EFFEXOR [Concomitant]
     Active Substance: VENLAFAXINE HYDROCHLORIDE
  21. GABAPENTIN. [Concomitant]
     Active Substance: GABAPENTIN

REACTIONS (5)
  - Nausea [None]
  - Constipation [None]
  - Vomiting [None]
  - Hypophagia [None]
  - Abdominal pain [None]

NARRATIVE: CASE EVENT DATE: 20150713
